FAERS Safety Report 7554468-2 (Version None)
Quarter: 2011Q2

REPORT INFORMATION
  Report Type: 
  Country: None (occurrence: None)
  Receive Date: 20110617
  Receipt Date: 20110614
  Transmission Date: 20111010
  Serious: Yes (Other)
  Sender: FDA-Public Use
  Company Number: A0931372A

PATIENT
  Sex: Female

DRUGS (4)
  1. UNKNOWN DRUG FOR ANXIETY [Concomitant]
  2. MORPHINE [Concomitant]
  3. UNSPECIFIED MEDICATION [Concomitant]
  4. ADVAIR DISKUS 100/50 [Suspect]
     Indication: CHRONIC OBSTRUCTIVE PULMONARY DISEASE
     Dosage: 2PUFF PER DAY
     Route: 055
     Dates: start: 20050101

REACTIONS (1)
  - PANCREATIC CARCINOMA [None]
